FAERS Safety Report 12709674 (Version 1)
Quarter: 2016Q3

REPORT INFORMATION
  Report Type: Spontaneous
  Country: BE (occurrence: BE)
  Receive Date: 20160902
  Receipt Date: 20160902
  Transmission Date: 20161109
  Serious: Yes (Life-Threatening, Other)
  Sender: FDA-Public Use
  Company Number: BE-HQ SPECIALTY-BE-2016INT000862

PATIENT
  Age: 57 Year
  Sex: Male

DRUGS (9)
  1. 5-FLUOROURACIL [Suspect]
     Active Substance: FLUOROURACIL
     Indication: OROPHARYNGEAL CANCER
     Dosage: 1000 MG, PER SQUARE METER ON DAYS 1-4 WEEKLY
     Dates: start: 20050509, end: 20050906
  2. CETUXIMAB [Suspect]
     Active Substance: CETUXIMAB
     Dosage: 400 MG, PER SQUARE METER ON DAY 1 OF THE FIRST CYCLE (INITIAL LOADING DOSE)
     Dates: start: 20060614
  3. CISPLATIN. [Suspect]
     Active Substance: CISPLATIN
     Indication: OROPHARYNGEAL CANCER
     Dosage: 100 MG, PER SQUARE METER OF BODY-SURFACE AREA ON DAY 1 WEEKLY
     Dates: start: 20050509, end: 20050906
  4. CISPLATIN. [Suspect]
     Active Substance: CISPLATIN
     Dosage: 75 MG, PER SQUARE METER ON DAY 1 WEEKLY
     Dates: start: 20060614, end: 20060916
  5. CETUXIMAB [Suspect]
     Active Substance: CETUXIMAB
     Indication: OROPHARYNGEAL CANCER
     Dosage: 400 MG, PER SQUARE METER WEEKLY (INITIAL DOSE)
     Dates: start: 20050913
  6. DOCETAXEL. [Suspect]
     Active Substance: DOCETAXEL
     Indication: OROPHARYNGEAL CANCER
     Dosage: 75 MG, PER SQUARE METER ON DAY 1 WEEKLY
     Dates: start: 20060614, end: 20060916
  7. CETUXIMAB [Suspect]
     Active Substance: CETUXIMAB
     Dosage: 250 MG, PER SQAUARE METER ON DAYS 1, 8, AND 15 WEEKLY
     Dates: end: 20060916
  8. 5-FLUOROURACIL [Suspect]
     Active Substance: FLUOROURACIL
     Dosage: 750 MG, PER SQUARE METER ON DAYS 1-5 WEEKLY
     Dates: start: 20060614, end: 20060916
  9. CETUXIMAB [Suspect]
     Active Substance: CETUXIMAB
     Dosage: 250 MG, PER SQUARE METER WEEKLY
     Dates: end: 20060503

REACTIONS (14)
  - Febrile neutropenia [Recovered/Resolved]
  - Alopecia [Recovered/Resolved]
  - Fatigue [Recovered/Resolved]
  - Constipation [Recovered/Resolved]
  - Rash [Recovered/Resolved]
  - Stomatitis [Recovered/Resolved]
  - Infection [Recovered/Resolved]
  - Dizziness [Recovered/Resolved]
  - Nausea [Recovered/Resolved]
  - Peripheral sensory neuropathy [Not Recovered/Not Resolved]
  - Nail disorder [Recovered/Resolved]
  - Diarrhoea [Recovered/Resolved]
  - Decreased appetite [Recovered/Resolved]
  - Deafness [Not Recovered/Not Resolved]

NARRATIVE: CASE EVENT DATE: 2005
